FAERS Safety Report 8806518 (Version 2)
Quarter: 2013Q1

REPORT INFORMATION
  Report Type: Spontaneous
  Country: US (occurrence: US)
  Receive Date: 20120925
  Receipt Date: 20130116
  Transmission Date: 20140127
  Serious: Yes (Hospitalization)
  Sender: FDA-Public Use
  Company Number: US-BAYER-2012-097386

PATIENT
  Age: 40 Year
  Sex: Female
  Weight: 79.37 kg

DRUGS (16)
  1. YAZ [Suspect]
     Indication: MENORRHAGIA
     Dosage: UNK
     Dates: start: 2004, end: 200708
  2. YASMIN [Suspect]
     Dosage: UNK
     Dates: start: 2004, end: 200708
  3. ALBUTEROL [Concomitant]
     Dosage: 90 ?G, UNK
  4. SINGULAIR [Concomitant]
     Dosage: 10 MG, UNK
  5. FEXOFENADINE HYDROCHLORIDE [Concomitant]
     Dosage: 60 MG, UNK
  6. DIAZEPAM [Concomitant]
     Dosage: 2 MG, UNK
  7. HYDROCODONE W/ACETAMINOPHEN [Concomitant]
     Dosage: 7.5-500 MG
  8. PROMETHAZINE HYDROCHLORIDE [Concomitant]
     Dosage: 25 MG, UNK
  9. ATROVENT INHALER [Concomitant]
     Route: 045
  10. IBUPROFEN [Concomitant]
  11. PERCOCET [Concomitant]
  12. VALIUM [Concomitant]
  13. KEFLEX [Concomitant]
  14. FLOVENT HFA [Concomitant]
     Dosage: 220 ?G, UNK
  15. UNASYN [Concomitant]
  16. AUGMENTIN [Concomitant]
     Dosage: 875 MG, UNK

REACTIONS (6)
  - Deep vein thrombosis [None]
  - Pulmonary embolism [Recovering/Resolving]
  - Injury [None]
  - Pain [None]
  - Emotional distress [None]
  - Pain [None]
